FAERS Safety Report 9395942 (Version 1)
Quarter: 2013Q3

REPORT INFORMATION
  Report Type: Spontaneous
  Country: US (occurrence: US)
  Receive Date: 20130711
  Receipt Date: 20130711
  Transmission Date: 20140515
  Serious: Yes (Hospitalization, Other)
  Sender: FDA-Public Use
  Company Number: US-UCBSA-091441

PATIENT
  Age: 77 Year
  Sex: Male

DRUGS (9)
  1. LEVETIRACETAM [Suspect]
     Indication: POST-TRAUMATIC EPILEPSY
     Route: 042
  2. FUROSEMIDE [Concomitant]
     Dosage: DAILY DOSE: 40 MG
     Route: 048
  3. FUROSEMIDE [Concomitant]
     Dosage: 20 MG PER NASOGASTRIC (NG) TUBE DAILY
  4. POTASSIUM CHLORIDE [Concomitant]
     Route: 048
  5. ASPIRIN [Concomitant]
     Dosage: DAILY DOSE: 81 MG
     Route: 048
  6. ACETAMINOPHEN [Concomitant]
     Indication: PYREXIA
     Dosage: 650 MG ONCE
     Route: 054
  7. VANCOMYCIN [Concomitant]
     Indication: MENINGITIS
     Dosage: 2 G ONCE
     Route: 042
  8. CEFTRIAXONE [Concomitant]
     Indication: MENINGITIS
     Dosage: 2 G ONCE
     Route: 042
  9. ACYCLOVIR [Concomitant]
     Indication: MENINGITIS
     Dosage: 1 G ONCE
     Route: 042

REACTIONS (1)
  - Delirium [Recovered/Resolved]
